FAERS Safety Report 8817359 (Version 1)
Quarter: 2012Q4

REPORT INFORMATION
  Report Type: 
  Country: US (occurrence: US)
  Receive Date: 20121001
  Receipt Date: 20121001
  Transmission Date: 20130627
  Serious: Yes (Hospitalization)
  Sender: FDA-Public Use
  Company Number: US-BAYER-2012-100958

PATIENT
  Age: 25 Year
  Sex: Female

DRUGS (11)
  1. YASMIN [Suspect]
  2. OCELLA [Suspect]
  3. ABILIFY [Concomitant]
  4. CELEXA [Concomitant]
  5. ATARAX [Concomitant]
  6. ATENOLOL [Concomitant]
  7. SEROQUEL [Concomitant]
  8. AMBIEN [Concomitant]
  9. LUNESTA [Concomitant]
  10. IBUPROFEN [Concomitant]
     Dosage: 800 mg, daily
  11. CITALOPRAM [Concomitant]

REACTIONS (1)
  - Pulmonary embolism [None]
